FAERS Safety Report 8438400-5 (Version None)
Quarter: 2012Q2

REPORT INFORMATION
  Report Type: 
  Country: None (occurrence: None)
  Receive Date: 20120614
  Receipt Date: 20120605
  Transmission Date: 20120825
  Serious: Yes (Hospitalization)
  Sender: FDA-Public Use
  Company Number: US-ELI_LILLY_AND_COMPANY-US201206002104

PATIENT
  Sex: Female

DRUGS (5)
  1. AMBIEN [Concomitant]
     Dosage: UNK
  2. VAGIFEM [Concomitant]
     Dosage: UNK, 2/W
  3. ATIVAN [Concomitant]
     Indication: PAIN
     Dosage: UNK, PRN
  4. FORTEO [Suspect]
     Dosage: 20 UG, QD
     Dates: start: 20111101
  5. FORTEO [Suspect]
     Indication: OSTEOPOROSIS
     Dosage: 20 UG, QD
     Dates: start: 20111101

REACTIONS (3)
  - OSTEOARTHRITIS [None]
  - SPINAL FUSION SURGERY [None]
  - SCOLIOSIS [None]
